FAERS Safety Report 12247703 (Version 1)
Quarter: 2016Q2

REPORT INFORMATION
  Report Type: Spontaneous
  Country: US (occurrence: US)
  Receive Date: 20160408
  Receipt Date: 20160408
  Transmission Date: 20160815
  Serious: No
  Sender: FDA-Public Use
  Company Number: US-HOSPIRA-2798644

PATIENT
  Age: 33 Year
  Sex: Female

DRUGS (1)
  1. PROPOFOL. [Suspect]
     Active Substance: PROPOFOL
     Indication: PRODUCT USED FOR UNKNOWN INDICATION
     Dosage: NOT REPORTED
     Dates: start: 20150312

REACTIONS (7)
  - Myalgia [Unknown]
  - Drug administration error [Unknown]
  - Urticaria [Unknown]
  - Nausea [Unknown]
  - Pyrexia [Unknown]
  - Rash [Unknown]
  - Product quality issue [Unknown]

NARRATIVE: CASE EVENT DATE: 20150312
